FAERS Safety Report 7971983-8 (Version None)
Quarter: 2011Q4

REPORT INFORMATION
  Report Type: 
  Country: None (occurrence: None)
  Receive Date: 20111212
  Receipt Date: 20111204
  Transmission Date: 20120403
  Serious: Yes (Other)
  Sender: FDA-Public Use
  Company Number: US-PFIZER INC-2011297671

PATIENT
  Age: 55 Year
  Sex: Male

DRUGS (2)
  1. BENEFIX [Suspect]
     Dosage: UNKNOWN DOSE AND FREQUENCY
  2. BENEFIX [Suspect]
     Dosage: 6000 IU, UNK

REACTIONS (1)
  - DRUG INEFFECTIVE [None]
